FAERS Safety Report 4988229-5 (Version None)
Quarter: 2006Q2

REPORT INFORMATION
  Report Type: 
  Country: None (occurrence: None)
  Receive Date: 20060425
  Receipt Date: 20060410
  Transmission Date: 20061013
  Serious: Yes (Hospitalization)
  Sender: FDA-Public Use
  Company Number: 2006050194

PATIENT
  Age: 65 Year
  Sex: Female
  Weight: 71 kg

DRUGS (6)
  1. XALATAN [Suspect]
     Indication: ILL-DEFINED DISORDER
     Dosage: 2 DOSE FORMS (DAILY), CONJUNCTIVAL
     Dates: start: 20060101, end: 20060315
  2. ALPHAGAN [Suspect]
     Indication: ILL-DEFINED DISORDER
     Dosage: 2 DOSE FORMS (DAILY), CONJUNCTIVAL
     Dates: start: 20060101, end: 20060315
  3. PROGESTERONE [Suspect]
     Indication: ILL-DEFINED DISORDER
     Dosage: UNK (1 IN 1 D), ORAL
     Route: 048
     Dates: end: 20060315
  4. FLECAINIDE ACETATE [Suspect]
     Indication: ILL-DEFINED DISORDER
     Dosage: 200 MG (UNKNOWN), ORAL
     Route: 048
     Dates: start: 20030115, end: 20060315
  5. PIROXICAM [Suspect]
     Indication: ILL-DEFINED DISORDER
     Dosage: UNK (200 MG, UNKNOWN), ORAL
     Route: 048
     Dates: end: 20060301
  6. GINKGO BILOBA (GINKGO BILOBA) [Suspect]
     Indication: ILL-DEFINED DISORDER
     Dosage: 3 DOSE FORMS (DAILY), ORAL
     Route: 048
     Dates: start: 20000101, end: 20060315

REACTIONS (4)
  - BONE MARROW FAILURE [None]
  - PANCYTOPENIA [None]
  - PHARYNGOLARYNGEAL PAIN [None]
  - PYREXIA [None]
